FAERS Safety Report 6265655-8 (Version None)
Quarter: 2009Q3

REPORT INFORMATION
  Report Type: 
  Country: None (occurrence: None)
  Receive Date: 20090713
  Receipt Date: 20090630
  Transmission Date: 20100115
  Serious: Yes (Other)
  Sender: FDA-Public Use
  Company Number: GB-ROCHE-641244

PATIENT
  Age: 41 Year
  Sex: Female
  Weight: 137.3 kg

DRUGS (12)
  1. TAMIFLU [Suspect]
     Indication: ANTIVIRAL PROPHYLAXIS
     Route: 048
     Dates: start: 20090617, end: 20090623
  2. BUPRENORPHINE HCL [Concomitant]
  3. CYCLOSPORINE [Concomitant]
  4. CO-AMILOFRUSE [Concomitant]
  5. ENOXAPARIN SODIUM [Concomitant]
  6. MULTI-VITAMINS [Concomitant]
  7. GABAPENTIN [Concomitant]
  8. MEBEVERINE HYDROCHLORIDE [Concomitant]
  9. OMEPRAZOLE [Concomitant]
  10. PARACETAMOL [Concomitant]
  11. PREDNISOLONE [Concomitant]
  12. SUMATRIPTAN SUCCINATE [Concomitant]

REACTIONS (7)
  - ABDOMINAL PAIN [None]
  - FATIGUE [None]
  - HEADACHE [None]
  - MOUTH ULCERATION [None]
  - NAUSEA [None]
  - PAIN [None]
  - VOMITING [None]
